FAERS Safety Report 9152911 (Version 1)
Quarter: 2013Q1

REPORT INFORMATION
  Report Type: Spontaneous
  Country: US (occurrence: US)
  Receive Date: 20130124
  Receipt Date: 20130124
  Transmission Date: 20140127
  Serious: Yes (Other)
  Sender: FDA-Public Use
  Company Number: US-RB-048866-13

PATIENT
  Age: 22 Year
  Sex: Female

DRUGS (4)
  1. SUBOXONE FILM [Suspect]
     Indication: DRUG DEPENDENCE
     Dosage: SUBOOXNE FILM ONE DAILY IF AVAILABLE
     Route: 065
     Dates: start: 201212
  2. METHADONE [Suspect]
     Indication: DRUG DEPENDENCE
     Dosage: 1/4 WAFER PER DAY IF AVAILABLE
     Route: 048
     Dates: start: 201212
  3. PRENATAL VITAMINS [Concomitant]
     Indication: PREGNANCY
     Route: 065
  4. CIGARETTES [Concomitant]
     Indication: NICOTINE DEPENDENCE
     Dosage: 1/2 PACK PER DAY
     Route: 065

REACTIONS (3)
  - Exposure during pregnancy [Not Recovered/Not Resolved]
  - Vaginal haemorrhage [Not Recovered/Not Resolved]
  - Substance abuse [Not Recovered/Not Resolved]
